FAERS Safety Report 14262144 (Version 1)
Quarter: 2017Q4

REPORT INFORMATION
  Report Type: Report from Study
  Country: None (occurrence: US)
  Receive Date: 20171208
  Receipt Date: 20171208
  Transmission Date: 20180321
  Serious: Yes (Other)
  Sender: FDA-Public Use
  Company Number: US-ABBVIE-16K-163-1613131-00

PATIENT
  Age: 63 Year
  Sex: Female
  Weight: 93.07 kg

DRUGS (11)
  1. AZATHIOPRINE. [Concomitant]
     Active Substance: AZATHIOPRINE
     Indication: CROHN^S DISEASE
  2. SPIRONOLACTONE. [Concomitant]
     Active Substance: SPIRONOLACTONE
     Indication: HYPERTENSION
  3. BISOPROLOL [Concomitant]
     Active Substance: BISOPROLOL
     Indication: HYPERTENSION
  4. HUMIRA [Suspect]
     Active Substance: ADALIMUMAB
     Route: 058
     Dates: start: 20160906
  5. HUMIRA [Suspect]
     Active Substance: ADALIMUMAB
     Indication: CROHN^S DISEASE
     Dosage: DAY 1
     Route: 058
     Dates: start: 20130528, end: 20130528
  6. ELMIRON [Concomitant]
     Active Substance: PENTOSAN POLYSULFATE SODIUM
     Indication: URINARY INCONTINENCE
  7. HUMIRA [Suspect]
     Active Substance: ADALIMUMAB
     Dosage: DAY 15
     Route: 058
     Dates: start: 20130611, end: 20130611
  8. LOSARTAN. [Concomitant]
     Active Substance: LOSARTAN
     Indication: HYPERTENSION
  9. HUMIRA [Suspect]
     Active Substance: ADALIMUMAB
     Route: 058
     Dates: start: 20160105, end: 20160830
  10. MYRBETRIQ [Concomitant]
     Active Substance: MIRABEGRON
     Indication: URINARY INCONTINENCE
  11. HUMIRA [Suspect]
     Active Substance: ADALIMUMAB
     Dosage: MAINTENANCE DOSE
     Route: 058
     Dates: start: 2013, end: 20151003

REACTIONS (18)
  - Cartilage atrophy [Recovered/Resolved]
  - Hip deformity [Recovered/Resolved]
  - Depressed mood [Unknown]
  - Injection site pain [Unknown]
  - Diarrhoea [Unknown]
  - Injection site bruising [Unknown]
  - Arthralgia [Not Recovered/Not Resolved]
  - Groin pain [Recovered/Resolved]
  - Crohn^s disease [Recovered/Resolved]
  - Bone cyst [Not Recovered/Not Resolved]
  - Haemorrhoidal haemorrhage [Unknown]
  - Gait disturbance [Recovered/Resolved]
  - Fear of disease [Unknown]
  - Insomnia [Unknown]
  - Abdominal pain [Recovered/Resolved]
  - Poor quality sleep [Unknown]
  - Postoperative wound complication [Recovered/Resolved]
  - Wound infection staphylococcal [Recovered/Resolved]

NARRATIVE: CASE EVENT DATE: 2015
